FAERS Safety Report 18655283 (Version 7)
Quarter: 2022Q1

REPORT INFORMATION
  Report Type: Spontaneous
  Country: BR (occurrence: BR)
  Receive Date: 20201223
  Receipt Date: 20220203
  Transmission Date: 20220424
  Serious: Yes (Death, Other)
  Sender: FDA-Public Use
  Company Number: BR-009507513-2012BRA010476

PATIENT
  Age: 85 Year
  Sex: Male

DRUGS (8)
  1. ZERBAXA [Suspect]
     Active Substance: CEFTOLOZANE SULFATE\TAZOBACTAM SODIUM
     Indication: Sepsis
     Dosage: UNK
     Dates: start: 20201111, end: 20201125
  2. MEROPENEM [Concomitant]
     Active Substance: MEROPENEM
     Dosage: UNK
     Dates: start: 20201008, end: 20201104
  3. VANCOMYCIN [Concomitant]
     Active Substance: VANCOMYCIN
     Dosage: UNK
     Dates: start: 20201008, end: 20201104
  4. AMIKACIN [Concomitant]
     Active Substance: AMIKACIN
  5. POLYMYXIN [Concomitant]
     Active Substance: POLYMYXIN
  6. FLUCONAZOLE [Concomitant]
     Active Substance: FLUCONAZOLE
  7. LINEZOLID [Concomitant]
     Active Substance: LINEZOLID
  8. MICAFUNGIN [Concomitant]
     Active Substance: MICAFUNGIN

REACTIONS (4)
  - Death [Fatal]
  - Mechanical ventilation [Unknown]
  - Bacterial test positive [Unknown]
  - Stenotrophomonas test positive [Unknown]

NARRATIVE: CASE EVENT DATE: 20200101
